FAERS Safety Report 11408839 (Version 1)
Quarter: 2015Q3

REPORT INFORMATION
  Report Type: Spontaneous
  Country: US (occurrence: US)
  Receive Date: 20150823
  Receipt Date: 20150823
  Transmission Date: 20151125
  Serious: No
  Sender: FDA-Public Use
  Company Number: US-GLAXOSMITHKLINE-US2015GSK088912

PATIENT
  Age: 56 Year
  Sex: Female

DRUGS (2)
  1. PROCHLORPERAZINE. [Interacting]
     Active Substance: PROCHLORPERAZINE
     Indication: PRODUCT USED FOR UNKNOWN INDICATION
     Dosage: UNK
  2. TYKERB [Suspect]
     Active Substance: LAPATINIB DITOSYLATE
     Indication: BREAST CANCER IN SITU
     Dosage: UNK
     Dates: start: 20150618

REACTIONS (2)
  - Vomiting [Unknown]
  - Drug interaction [Unknown]

NARRATIVE: CASE EVENT DATE: 20150619
